FAERS Safety Report 10540241 (Version 1)
Quarter: 2014Q4

REPORT INFORMATION
  Report Type: Spontaneous
  Country: US (occurrence: None)
  Receive Date: 20141023
  Receipt Date: 20141023
  Transmission Date: 20150529
  Serious: Yes (Disabling)
  Sender: FDA-Public Use
  Company Number: None

PATIENT
  Age: 61 Year
  Sex: Female
  Weight: 127.01 kg

DRUGS (1)
  1. XARELTO [Suspect]
     Active Substance: RIVAROXABAN
     Indication: THERAPY CHANGE
     Dosage: 1 PILL 20 MG ONCE DAILY TAKEN BY MOUTH
     Route: 048
     Dates: start: 20140130, end: 20140925

REACTIONS (2)
  - Diabetes mellitus [None]
  - Muscle spasms [None]
